FAERS Safety Report 7570018-9 (Version None)
Quarter: 2011Q2

REPORT INFORMATION
  Report Type: 
  Country: None (occurrence: None)
  Receive Date: 20110622
  Receipt Date: 20110622
  Transmission Date: 20111010
  Serious: Yes (Death, Disabling)
  Sender: FDA-Public Use
  Company Number: None

PATIENT
  Sex: Male
  Weight: 68.2 kg

DRUGS (2)
  1. LARIAM [Suspect]
     Indication: MALARIA PROPHYLAXIS
     Dosage: 1 TABLET 1 PER WEEK
     Dates: start: 20090101
  2. MEFLOQUINE HYDROCHLORIDE [Suspect]

REACTIONS (9)
  - DISTURBANCE IN ATTENTION [None]
  - EDUCATIONAL PROBLEM [None]
  - HALLUCINATION [None]
  - ANXIETY [None]
  - DEPRESSION [None]
  - CONFUSIONAL STATE [None]
  - NEGATIVE THOUGHTS [None]
  - FEAR [None]
  - COMPLETED SUICIDE [None]
